FAERS Safety Report 15829813 (Version 1)
Quarter: 2019Q1

REPORT INFORMATION
  Report Type: Spontaneous
  Country: US (occurrence: US)
  Receive Date: 20190115
  Receipt Date: 20190115
  Transmission Date: 20190417
  Serious: No
  Sender: FDA-Public Use
  Company Number: US-PERRIGO-18US012503

PATIENT
  Age: 62 Year
  Sex: Female
  Weight: 58.5 kg

DRUGS (4)
  1. TRETINOIN 0.05% CREAM (2L4) [Suspect]
     Active Substance: TRETINOIN
     Indication: ROUTINE HEALTH MAINTENANCE
  2. TRETINOIN 0.05% CREAM (2L4) [Suspect]
     Active Substance: TRETINOIN
     Indication: SKIN WRINKLING
     Dosage: ONE APPLICATION, QHS
     Route: 061
     Dates: start: 20181026
  3. HAIR, SKIN + NAILS                 /00772301/ [Concomitant]
     Indication: SUPPLEMENTATION THERAPY
     Dosage: UNK
     Route: 065
  4. BIOTIN [Concomitant]
     Active Substance: BIOTIN
     Indication: SUPPLEMENTATION THERAPY
     Dosage: UNK
     Route: 065

REACTIONS (3)
  - Off label use [Not Recovered/Not Resolved]
  - Application site vesicles [Not Recovered/Not Resolved]
  - Application site erythema [Not Recovered/Not Resolved]

NARRATIVE: CASE EVENT DATE: 20181026
